FAERS Safety Report 5660694 (Version 5)
Quarter: 2020Q3

REPORT INFORMATION
  Report Type: Report from Study
  Country: GB (occurrence: GB)
  Receive Date: 20041104
  Receipt Date: 20060331
  Transmission Date: 20201105
  Serious: Yes (Hospitalization)
  Sender: FDA-Public Use
  Company Number: GB-JNJFOC-20040909908

PATIENT
  Age: 67 Year
  Sex: Female

DRUGS (5)
  1. PLACEBO [Suspect]
     Active Substance: UNSPECIFIED INGREDIENT
     Indication: CACHEXIA
     Route: 042
  2. PLACEBO [Suspect]
     Active Substance: UNSPECIFIED INGREDIENT
     Route: 042
  3. PLACEBO [Suspect]
     Active Substance: UNSPECIFIED INGREDIENT
     Route: 042
  4. GEMCITABINE. [Suspect]
     Active Substance: GEMCITABINE
     Dosage: RECEIVED 5 INFUSIONS TO DATE
     Route: 042
  5. GEMCITABINE. [Suspect]
     Active Substance: GEMCITABINE
     Route: 042

REACTIONS (11)
  - Haemoglobin decreased [None]
  - Alanine aminotransferase increased [None]
  - Blood glucose increased [None]
  - Aspartate aminotransferase increased [None]
  - Pyrexia [Recovered/Resolved]
  - Rash [Recovered/Resolved]
  - Vomiting [Recovered/Resolved]
  - Drug interaction [None]
  - Drug hypersensitivity [None]
  - Haematocrit decreased [None]
  - Hypokalaemia [None]

NARRATIVE: CASE EVENT DATE: 20040925
